FAERS Safety Report 15367163 (Version 1)
Quarter: 2018Q3

REPORT INFORMATION
  Report Type: Spontaneous
  Country: US (occurrence: US)
  Receive Date: 20180903
  Receipt Date: 20180903
  Transmission Date: 20181010
  Serious: Yes (Disabling)
  Sender: FDA-Public Use
  Company Number: None

PATIENT
  Age: 19 Year
  Sex: Female
  Weight: 55.35 kg

DRUGS (5)
  1. RED RASPBERRY LEAVES [Concomitant]
  2. 70 METRONIDAZOLE VAGINAL 0.75% GEL OCEA [Suspect]
     Active Substance: METRONIDAZOLE
     Indication: BACTERIAL VAGINOSIS
     Dosage: ?          QUANTITY:1 DF DOSAGE FORM;?
     Route: 067
     Dates: start: 20180820, end: 20180824
  3. VALERIAN ROOT [Concomitant]
     Active Substance: VALERIAN
  4. VITAMIN?D3 [Concomitant]
  5. ACCUFLORA [Concomitant]
     Active Substance: UNSPECIFIED INGREDIENT

REACTIONS (7)
  - Malaise [None]
  - Vaginal discharge [None]
  - Pelvic pain [None]
  - Vaginal haemorrhage [None]
  - Vaginal odour [None]
  - Vulvovaginal pain [None]
  - Fatigue [None]

NARRATIVE: CASE EVENT DATE: 20180828
